FAERS Safety Report 16327288 (Version 1)
Quarter: 2019Q2

REPORT INFORMATION
  Report Type: Spontaneous
  Country: DK (occurrence: DK)
  Receive Date: 20190517
  Receipt Date: 20190517
  Transmission Date: 20190711
  Serious: Yes (Hospitalization)
  Sender: FDA-Public Use
  Company Number: DK-PFIZER INC-2019204061

PATIENT
  Age: 30 Year
  Sex: Male

DRUGS (1)
  1. FRAGMIN [Suspect]
     Active Substance: DALTEPARIN SODIUM
     Indication: INTRACRANIAL VENOUS SINUS THROMBOSIS
     Dosage: SINGLE DOSE, HIGH DOSE, STRENGTH: UNKNOWN.
     Dates: start: 20180622, end: 20180622

REACTIONS (3)
  - Eye haemorrhage [Unknown]
  - Papilloedema [Unknown]
  - Visual impairment [Unknown]
